FAERS Safety Report 4379982-2 (Version None)
Quarter: 2004Q2

REPORT INFORMATION
  Report Type: 
  Country: None (occurrence: None)
  Receive Date: 20040614
  Receipt Date: 20040603
  Transmission Date: 20050107
  Serious: Yes (Hospitalization, Disabling)
  Sender: FDA-Public Use
  Company Number: 2004EU001078

PATIENT
  Age: 45 Year
  Sex: Male
  Weight: 72 kg

DRUGS (6)
  1. PROGRAF [Suspect]
     Indication: RENAL TRANSPLANT
     Dosage: UNKNOWN/D
     Route: 065
     Dates: start: 20020729
  2. GANCICLOVIR [Suspect]
     Dosage: UNK
     Route: 065
     Dates: start: 20020101, end: 20030101
  3. IMUREL [Concomitant]
  4. PREDNISOLONE [Concomitant]
  5. SINTROM [Concomitant]
  6. OMEPRAZOLE [Concomitant]

REACTIONS (6)
  - CONVULSION [None]
  - ELECTROENCEPHALOGRAM ABNORMAL [None]
  - OPTIC NEURITIS RETROBULBAR [None]
  - POLYCYTHAEMIA [None]
  - RETINAL VEIN THROMBOSIS [None]
  - TREMOR [None]
